FAERS Safety Report 10899092 (Version 1)
Quarter: 2015Q1

REPORT INFORMATION
  Report Type: Spontaneous
  Country: TR (occurrence: TR)
  Receive Date: 20150309
  Receipt Date: 20150309
  Transmission Date: 20150721
  Serious: Yes (Hospitalization)
  Sender: FDA-Public Use
  Company Number: PHHY2015TR027042

PATIENT
  Age: 7 Year
  Sex: Female

DRUGS (2)
  1. DEFERASIROX [Suspect]
     Active Substance: DEFERASIROX
     Indication: THALASSAEMIA BETA
     Dosage: 20 MG/KG, QD
     Route: 065
  2. DEFERIPRONE [Suspect]
     Active Substance: DEFERIPRONE
     Indication: THALASSAEMIA BETA
     Dosage: 75 MG/KG, QD
     Route: 065

REACTIONS (7)
  - Nephrotic syndrome [Recovered/Resolved]
  - Joint swelling [Unknown]
  - Proteinuria [Recovered/Resolved]
  - Glomerulonephritis membranous [Recovered/Resolved]
  - Eyelid oedema [Unknown]
  - Periorbital oedema [Unknown]
  - Hypoalbuminaemia [Recovered/Resolved]
